FAERS Safety Report 5376553-6 (Version None)
Quarter: 2007Q2

REPORT INFORMATION
  Report Type: 
  Country: None (occurrence: None)
  Receive Date: 20070629
  Receipt Date: 20070613
  Transmission Date: 20071010
  Serious: Yes (Hospitalization)
  Sender: FDA-Public Use
  Company Number: GRP07000050

PATIENT
  Age: 68 Year
  Sex: Female
  Weight: 62 kg

DRUGS (3)
  1. ACTONEL [Suspect]
     Indication: OSTEOPOROSIS
     Dosage: SEE IMAGE
     Route: 048
     Dates: start: 20000101, end: 20070101
  2. ACTONEL [Suspect]
     Indication: OSTEOPOROSIS
     Dosage: SEE IMAGE
     Route: 048
     Dates: start: 20070101
  3. L-THYROX (LEVOTHYROXINE SODIUM) [Concomitant]

REACTIONS (16)
  - AORTIC ARTERIOSCLEROSIS [None]
  - AORTIC VALVE INCOMPETENCE [None]
  - ARTERIOSCLEROSIS [None]
  - BACTERIA URINE IDENTIFIED [None]
  - CARDIAC FAILURE [None]
  - CEREBELLAR SYNDROME [None]
  - CHRONIC OBSTRUCTIVE PULMONARY DISEASE [None]
  - CONSCIOUSNESS FLUCTUATING [None]
  - DILATATION VENTRICULAR [None]
  - DRUG ADMINISTRATION ERROR [None]
  - DYSARTHRIA [None]
  - GRAND MAL CONVULSION [None]
  - HYPERCHOLESTEROLAEMIA [None]
  - LEUKOENCEPHALOPATHY [None]
  - MITRAL VALVE INCOMPETENCE [None]
  - POSTICTAL PARALYSIS [None]
